FAERS Safety Report 10489428 (Version 2)
Quarter: 2014Q4

REPORT INFORMATION
  Report Type: Spontaneous
  Country: BR (occurrence: None)
  Receive Date: 20140930
  Receipt Date: 20141230
  Transmission Date: 20150528
  Serious: Yes (Other)
  Sender: FDA-Public Use
  Company Number: 2014-20409

PATIENT
  Age: 75 Year
  Sex: Female

DRUGS (1)
  1. EYLEA [Suspect]
     Active Substance: AFLIBERCEPT
     Indication: AGE-RELATED MACULAR DEGENERATION
     Dosage: UNK, INTRAOCULAR
     Route: 031
     Dates: start: 201409

REACTIONS (3)
  - Visual acuity reduced [None]
  - Vitritis [None]
  - Retinal haemorrhage [None]

NARRATIVE: CASE EVENT DATE: 201409
